FAERS Safety Report 9355185 (Version 2)
Quarter: 2013Q2

REPORT INFORMATION
  Report Type: Spontaneous
  Country: PT (occurrence: PT)
  Receive Date: 20130619
  Receipt Date: 20130624
  Transmission Date: 20140414
  Serious: Yes (Hospitalization)
  Sender: FDA-Public Use
  Company Number: PT-VERTEX PHARMACEUTICALS INC-2013-005690

PATIENT
  Sex: Male

DRUGS (3)
  1. INCIVO [Suspect]
     Indication: HEPATITIS C
     Dosage: 750 MG, TID, TABLET
     Dates: start: 20130418
  2. PEG INTERFERON [Concomitant]
     Indication: PRODUCT USED FOR UNKNOWN INDICATION
  3. RIBAVIRIN [Concomitant]
     Indication: PRODUCT USED FOR UNKNOWN INDICATION

REACTIONS (3)
  - Gastrointestinal haemorrhage [Recovered/Resolved]
  - Myocardial infarction [Recovered/Resolved]
  - Anorectal discomfort [Recovered/Resolved]
